FAERS Safety Report 23979201 (Version 1)
Quarter: 2024Q2

REPORT INFORMATION
  Report Type: Spontaneous
  Country: US (occurrence: US)
  Receive Date: 20240615
  Receipt Date: 20240615
  Transmission Date: 20240716
  Serious: No
  Sender: FDA-Public Use
  Company Number: US-AMGEN-USASP2024114956

PATIENT
  Age: 33 Year
  Sex: Male

DRUGS (3)
  1. KRYSTEXXA [Suspect]
     Active Substance: PEGLOTICASE
     Indication: Gout
     Dosage: UNK UNK, Q2WK (BIWEEKLY)
     Route: 042
     Dates: start: 202404
  2. KRYSTEXXA [Suspect]
     Active Substance: PEGLOTICASE
     Dosage: UNK UNK, Q2WK (BIWEEKLY)
     Route: 042
     Dates: start: 2024, end: 202406
  3. METHOTREXATE [Suspect]
     Active Substance: METHOTREXATE
     Indication: Immunomodulatory therapy
     Dosage: 15 MILLIGRAM, QWK (WEEKLY)
     Route: 065

REACTIONS (2)
  - Chest discomfort [Recovered/Resolved]
  - Blood uric acid abnormal [Unknown]

NARRATIVE: CASE EVENT DATE: 20240101
